FAERS Safety Report 12823474 (Version 1)
Quarter: 2016Q4

REPORT INFORMATION
  Report Type: Spontaneous
  Country: US (occurrence: US)
  Receive Date: 20161006
  Receipt Date: 20161006
  Transmission Date: 20170207
  Serious: Yes (Hospitalization)
  Sender: FDA-Public Use
  Company Number: None

PATIENT
  Age: 17 Year
  Sex: Female
  Weight: 56 kg

DRUGS (10)
  1. ALBUTEROL HFA [Concomitant]
     Active Substance: ALBUTEROL SULFATE
  2. MULTIVITAMIN [Concomitant]
     Active Substance: VITAMINS
  3. CHOLECALCIFEROL [Concomitant]
     Active Substance: CHOLECALCIFEROL
  4. TRI-LO-SPRINTEC [Suspect]
     Active Substance: ETHINYL ESTRADIOL\NORGESTIMATE
     Indication: CONTRACEPTION
     Route: 048
  5. PREDNISONE. [Concomitant]
     Active Substance: PREDNISONE
  6. B VITAMIN COMPLEX [Concomitant]
  7. CYANOBALAMIN [Concomitant]
  8. BECLOMETHASONE HFA [Concomitant]
  9. FLUOXETINE [Concomitant]
     Active Substance: FLUOXETINE HYDROCHLORIDE
  10. BIOTIN [Concomitant]
     Active Substance: BIOTIN

REACTIONS (1)
  - Pulmonary embolism [None]

NARRATIVE: CASE EVENT DATE: 20160926
